FAERS Safety Report 6596837-3 (Version None)
Quarter: 2010Q1

REPORT INFORMATION
  Report Type: 
  Country: None (occurrence: None)
  Receive Date: 20100219
  Receipt Date: 20100219
  Transmission Date: 20100710
  Serious: No
  Sender: FDA-Public Use
  Company Number: None

PATIENT
  Age: 76 Year
  Sex: Female
  Weight: 49.8957 kg

DRUGS (10)
  1. QVAR 80 [Suspect]
     Indication: CHRONIC OBSTRUCTIVE PULMONARY DISEASE
     Dosage: 2 PUFFS (160 MCG) TWICE DAILY INHALATION
     Route: 055
     Dates: start: 20091210, end: 20091229
  2. FLUOXETINE [Concomitant]
  3. PROAIR HFA [Concomitant]
  4. LORAZEPAM [Concomitant]
  5. AMOXICILLIN [Concomitant]
  6. PREDNISONE [Concomitant]
  7. ATROVENT [Concomitant]
  8. FLUTICASONE NASAL SPRAY [Concomitant]
  9. ALBUTEROL SULFATE NEBULIZER SOLUTION [Concomitant]
  10. IPRATROPIUM BROMIDE NEBULIZER SOLUTION [Concomitant]

REACTIONS (2)
  - THINKING ABNORMAL [None]
  - TREMOR [None]
